FAERS Safety Report 8332300-7 (Version None)
Quarter: 2012Q2

REPORT INFORMATION
  Report Type: 
  Country: None (occurrence: None)
  Receive Date: 20120503
  Receipt Date: 20120427
  Transmission Date: 20120825
  Serious: No
  Sender: FDA-Public Use
  Company Number: US-BIOGENIDEC-2009BI028230

PATIENT
  Sex: Female

DRUGS (3)
  1. AVONEX [Suspect]
     Indication: MULTIPLE SCLEROSIS
     Route: 030
     Dates: start: 20000404, end: 20110101
  2. TYSABRI [Concomitant]
     Route: 042
     Dates: start: 20050221, end: 20050221
  3. TYSABRI [Concomitant]
     Route: 042
     Dates: start: 20111027, end: 20120301

REACTIONS (4)
  - SLEEP APNOEA SYNDROME [None]
  - ARTHRITIS [None]
  - NEUROPATHY PERIPHERAL [None]
  - HYPOAESTHESIA [None]
